FAERS Safety Report 10854420 (Version 1)
Quarter: 2015Q1

REPORT INFORMATION
  Report Type: Spontaneous
  Country: US (occurrence: None)
  Receive Date: 20150218
  Receipt Date: 20150218
  Transmission Date: 20150721
  Serious: No
  Sender: FDA-Public Use
  Company Number: None

PATIENT
  Age: 50 Year
  Sex: Male
  Weight: 78.02 kg

DRUGS (1)
  1. LIPITOR [Suspect]
     Active Substance: ATORVASTATIN CALCIUM
     Dosage: 1 PER DAY ONCE DAILY

REACTIONS (9)
  - Back pain [None]
  - Malaise [None]
  - Pneumonia [None]
  - Bronchitis [None]
  - Sinusitis [None]
  - Feeling abnormal [None]
  - Fatigue [None]
  - Chromaturia [None]
  - Myalgia [None]

NARRATIVE: CASE EVENT DATE: 20150101
